FAERS Safety Report 4398550-X (Version None)
Quarter: 2004Q3

REPORT INFORMATION
  Report Type: 
  Country: None (occurrence: None)
  Receive Date: 20040715
  Receipt Date: 20040701
  Transmission Date: 20050211
  Serious: Yes (Other)
  Sender: FDA-Public Use
  Company Number: DE-GLAXOSMITHKLINE-D0044104A

PATIENT
  Age: 50 Year
  Sex: Female

DRUGS (2)
  1. LAMICTAL [Suspect]
     Indication: EPILEPSY
     Dosage: 200MG PER DAY
     Route: 048
     Dates: start: 20020801
  2. EUTHYROX [Concomitant]
     Dosage: 100MCG UNKNOWN
     Route: 048

REACTIONS (3)
  - FATIGUE [None]
  - LEUKOPENIA [None]
  - WEIGHT DECREASED [None]
